FAERS Safety Report 22162321 (Version 1)
Quarter: 2023Q1

REPORT INFORMATION
  Report Type: Other
  Country: ZA (occurrence: None)
  Receive Date: 20230331
  Receipt Date: 20230331
  Transmission Date: 20230417
  Serious: Yes (Other)
  Sender: FDA-Public Use
  Company Number: ZA-ROCHE-3317089

PATIENT
  Sex: Female

DRUGS (1)
  1. OCREVUS [Suspect]
     Active Substance: OCRELIZUMAB
     Indication: Relapsing multiple sclerosis
     Dosage: THEREAFTER 600 MG EVERY 6 MONTHS.
     Route: 041
     Dates: start: 20221026

REACTIONS (9)
  - Multiple sclerosis [Unknown]
  - Optic neuritis [Unknown]
  - Optic atrophy [Unknown]
  - Mucosal hypertrophy [Unknown]
  - Nasal oedema [Unknown]
  - Magnetic resonance imaging spinal abnormal [Unknown]
  - Intervertebral disc degeneration [Unknown]
  - Intervertebral disc protrusion [Unknown]
  - Spinal stenosis [Unknown]
